FAERS Safety Report 14423446 (Version 1)
Quarter: 2018Q1

REPORT INFORMATION
  Report Type: Spontaneous
  Country: NO (occurrence: NO)
  Receive Date: 20180123
  Receipt Date: 20180123
  Transmission Date: 20180509
  Serious: Yes (Disabling)
  Sender: FDA-Public Use
  Company Number: NO-TEVA-2018-NO-847410

PATIENT
  Age: 46 Year
  Sex: Female

DRUGS (11)
  1. AFIPRAN [Concomitant]
     Active Substance: METOCLOPRAMIDE HYDROCHLORIDE
  2. MAGNESIUM-DIASPORAL [Concomitant]
  3. TRAMADOL. [Concomitant]
     Active Substance: TRAMADOL
     Dosage: TOTAL DAILY DOSE 50-100 MG
  4. COPAXONE [Suspect]
     Active Substance: GLATIRAMER ACETATE
     Indication: MULTIPLE SCLEROSIS
     Dosage: SOLUTION FOR INJECTION 40 MG
     Route: 058
  5. NEURONTIN [Concomitant]
     Active Substance: GABAPENTIN
     Dosage: TOTAL DAILY DOSE 1200 MG
     Route: 048
  6. NALTREKSON KRAGERO [Concomitant]
  7. IBUX [Concomitant]
     Active Substance: IBUPROFEN
     Dosage: TOTAL DAILY DOSE: 1200-1600 MG
  8. LEVAXIN [Concomitant]
     Active Substance: LEVOTHYROXINE SODIUM
  9. PARACETAMOL [Concomitant]
     Active Substance: ACETAMINOPHEN
     Dosage: TOTAL DAILY DOSE 3-4 G
  10. CETIRIZIN SANDOZ [Concomitant]
  11. SAROTEX [Concomitant]
     Active Substance: AMITRIPTYLINE HYDROCHLORIDE
     Route: 048

REACTIONS (3)
  - Aggression [Unknown]
  - Personality change [Unknown]
  - Fatigue [Unknown]
